FAERS Safety Report 9709801 (Version 1)
Quarter: 2013Q4

REPORT INFORMATION
  Report Type: Spontaneous
  Country: US (occurrence: US)
  Receive Date: 20131126
  Receipt Date: 20131126
  Transmission Date: 20140711
  Serious: No
  Sender: FDA-Public Use
  Company Number: US-PFIZER INC-2013334821

PATIENT
  Sex: Female

DRUGS (9)
  1. GABAPENTIN [Suspect]
     Dosage: UNK
  2. ZOLOFT [Suspect]
     Dosage: UNK
  3. RISPERDAL [Suspect]
     Dosage: UNK
  4. SOMA [Suspect]
     Dosage: UNK
  5. LAMITOL [Suspect]
     Dosage: UNK
  6. MOBIC [Suspect]
     Dosage: UNK
  7. INVEGA [Suspect]
     Dosage: UNK
  8. ABILIFY [Suspect]
     Dosage: UNK
  9. TEGRETOL [Suspect]
     Dosage: UNK

REACTIONS (1)
  - Drug hypersensitivity [Unknown]
